FAERS Safety Report 7388717-0 (Version None)
Quarter: 2011Q1

REPORT INFORMATION
  Report Type: 
  Country: None (occurrence: None)
  Receive Date: 20110324
  Receipt Date: 20110314
  Transmission Date: 20110831
  Serious: Yes (Death)
  Sender: FDA-Public Use
  Company Number: 861385

PATIENT
  Age: 20 Year
  Sex: Female

DRUGS (3)
  1. CISPLATIN [Suspect]
     Indication: B PRECURSOR TYPE ACUTE LEUKAEMIA
     Dosage: DAY 3: 45 MG
  2. VINORELBINE TARTRATE [Suspect]
     Indication: B PRECURSOR TYPE ACUTE LEUKAEMIA
     Dosage: DAY 1: 30 MG,
  3. TOPOTECAN [Suspect]
     Indication: B PRECURSOR TYPE ACUTE LEUKAEMIA
     Dosage: DAY 2 AND 3: 1.5 MG,

REACTIONS (9)
  - NEUTROPENIA [None]
  - HEPATIC FUNCTION ABNORMAL [None]
  - SOMNOLENCE [None]
  - DISORIENTATION [None]
  - CONVULSION [None]
  - DEPRESSED LEVEL OF CONSCIOUSNESS [None]
  - REFUSAL OF TREATMENT BY RELATIVE [None]
  - HYPERAMMONAEMIA [None]
  - RESPIRATORY ALKALOSIS [None]
